FAERS Safety Report 8375667-6 (Version None)
Quarter: 2012Q2

REPORT INFORMATION
  Report Type: 
  Country: None (occurrence: None)
  Receive Date: 20120522
  Receipt Date: 20120518
  Transmission Date: 20120825
  Serious: No
  Sender: FDA-Public Use
  Company Number: US-PFIZER INC-2012121380

PATIENT
  Sex: Female

DRUGS (1)
  1. SUTENT [Suspect]
     Indication: CARCINOID TUMOUR
     Dosage: 37.5 MG, 1X/DAY, (3 TABS OF 12.5 MG DAILY)

REACTIONS (2)
  - ASTHENIA [None]
  - DEHYDRATION [None]
